FAERS Safety Report 19515112 (Version 11)
Quarter: 2022Q2

REPORT INFORMATION
  Report Type: Report from Study
  Country: US (occurrence: US)
  Receive Date: 20210710
  Receipt Date: 20220408
  Transmission Date: 20220721
  Serious: Yes (Other)
  Sender: FDA-Public Use
  Company Number: US-NOVARTISPH-NVSC2021US150803

PATIENT
  Sex: Female

DRUGS (4)
  1. MAYZENT [Suspect]
     Active Substance: SIPONIMOD
     Indication: Multiple sclerosis
     Dosage: 2 MG/KG, QD
     Route: 048
     Dates: start: 20210531
  2. MAYZENT [Suspect]
     Active Substance: SIPONIMOD
     Dosage: 2 MG/KG, QD
     Route: 048
  3. MAYZENT [Suspect]
     Active Substance: SIPONIMOD
     Dosage: 2 MG, Q2H
     Route: 065
  4. MAYZENT [Suspect]
     Active Substance: SIPONIMOD
     Dosage: 2 MG, QD
     Route: 065

REACTIONS (14)
  - Electrocardiogram QT prolonged [Not Recovered/Not Resolved]
  - Immunodeficiency [Unknown]
  - Spinal cord injury [Unknown]
  - Blood glucose increased [Unknown]
  - General physical health deterioration [Unknown]
  - Hypoaesthesia [Recovering/Resolving]
  - White blood cell count decreased [Not Recovered/Not Resolved]
  - Sinus tachycardia [Unknown]
  - White blood cell disorder [Unknown]
  - Left ventricular enlargement [Unknown]
  - Pain [Unknown]
  - Lymphocyte count decreased [Unknown]
  - Hepatic enzyme increased [Not Recovered/Not Resolved]
  - Liver function test increased [Unknown]
